FAERS Safety Report 9295516 (Version 1)
Quarter: 2013Q2

REPORT INFORMATION
  Report Type: Spontaneous
  Country: US (occurrence: US)
  Receive Date: 20130517
  Receipt Date: 20130517
  Transmission Date: 20140414
  Serious: No
  Sender: FDA-Public Use
  Company Number: US-BANPHARM-20130554

PATIENT
  Sex: Male

DRUGS (1)
  1. IBUPROFEN CAPSULES 200 MG [Suspect]
     Indication: BACK PAIN
     Dosage: 4-5 DF, ONCE,
     Route: 048
     Dates: start: 20130111, end: 20130111

REACTIONS (4)
  - Chest discomfort [Unknown]
  - Heart rate decreased [Unknown]
  - Dizziness [Unknown]
  - Incorrect dose administered [Unknown]
